FAERS Safety Report 10072823 (Version 1)
Quarter: 2014Q2

REPORT INFORMATION
  Report Type: Spontaneous
  Country: FR (occurrence: FR)
  Receive Date: 20140411
  Receipt Date: 20140411
  Transmission Date: 20141212
  Serious: Yes (Hospitalization)
  Sender: FDA-Public Use
  Company Number: FR-BAYER-2014-051489

PATIENT
  Age: 3 Year
  Sex: Male

DRUGS (14)
  1. CIPROFLOXACIN [Suspect]
     Indication: BRAIN ABSCESS
     Dosage: 25 MG/KG PER DAY
  2. CIPROFLOXACIN [Suspect]
     Indication: PSEUDOMONAS INFECTION
     Dosage: 25 MG/KG PER DAY
  3. CEFOTAXIME [Concomitant]
     Indication: BRAIN ABSCESS
     Dosage: 200 MG/KG PER DAY
     Route: 042
  4. CEFOTAXIME [Concomitant]
     Indication: PSEUDOMONAS INFECTION
  5. METRONIDAZOLE [Concomitant]
     Indication: BRAIN ABSCESS
     Dosage: 30 MG/KG PER DAY
  6. METRONIDAZOLE [Concomitant]
     Indication: PSEUDOMONAS INFECTION
     Dosage: 30 MG/KG PER DAY
  7. FOSFOMYCIN [Concomitant]
     Indication: BRAIN ABSCESS
     Dosage: 200 MG/KG PER DAY
  8. FOSFOMYCIN [Concomitant]
     Indication: PSEUDOMONAS INFECTION
  9. PHENOBARBITAL [Concomitant]
     Indication: BRAIN ABSCESS
     Dosage: 5 MG/KG PER DAY
  10. PHENOBARBITAL [Concomitant]
     Indication: PSEUDOMONAS INFECTION
  11. MEROPENEM [Concomitant]
     Indication: BRAIN ABSCESS
     Dosage: 500 MG, TID
  12. MEROPENEM [Concomitant]
     Indication: PSEUDOMONAS INFECTION
  13. AMOXI-CLAVULANICO [Concomitant]
     Indication: COUGH
     Dosage: UNK
     Route: 048
  14. AMOXI-CLAVULANICO [Concomitant]
     Indication: PYREXIA

REACTIONS (8)
  - Hemiparesis [None]
  - Off label use [None]
  - Blindness [None]
  - Dysphagia [Recovered/Resolved]
  - Epilepsy [None]
  - Hyponatraemia [Recovered/Resolved]
  - Cerebral salt-wasting syndrome [Recovered/Resolved]
  - Hepatocellular injury [Recovered/Resolved]
